FAERS Safety Report 5777589-3 (Version None)
Quarter: 2008Q2

REPORT INFORMATION
  Report Type: 
  Country: None (occurrence: None)
  Receive Date: 20080618
  Receipt Date: 20080606
  Transmission Date: 20081010
  Serious: Yes (Hospitalization)
  Sender: FDA-Public Use
  Company Number: US-ELI_LILLY_AND_COMPANY-US200806001615

PATIENT
  Age: 48 Year
  Sex: Female

DRUGS (8)
  1. CYMBALTA [Suspect]
     Indication: DEPRESSION
     Dosage: 30 MG, UNK
     Dates: start: 20071220, end: 20071222
  2. CYMBALTA [Suspect]
     Dosage: 60 MG, UNK
     Dates: start: 20071223
  3. RITALIN LA [Concomitant]
     Dosage: 30 MG, UNK
  4. TOPAMAX [Concomitant]
     Dosage: 25 MG, UNK
  5. LORAZEPAM [Concomitant]
     Dosage: 0.5 MG, UNK
  6. RITALIN [Concomitant]
     Dosage: UNK, EACH EVENING
  7. ZYRTEC [Concomitant]
  8. DESOGESTREL AND ETHINYL ESTRADIOL [Concomitant]
     Indication: CONTRACEPTION

REACTIONS (1)
  - COELIAC DISEASE [None]
